FAERS Safety Report 20974940 (Version 1)
Quarter: 2022Q2

REPORT INFORMATION
  Report Type: Spontaneous
  Country: CN (occurrence: CN)
  Receive Date: 20220617
  Receipt Date: 20220617
  Transmission Date: 20220721
  Serious: Yes (Life-Threatening, Other)
  Sender: FDA-Public Use
  Company Number: CN-SLATE RUN PHARMACEUTICALS-22CN001151

PATIENT

DRUGS (15)
  1. AZITHROMYCIN [Suspect]
     Active Substance: AZITHROMYCIN
     Indication: Infection prophylaxis
     Dosage: 0.5 GRAM, QD
  2. ASPIRIN [Concomitant]
     Active Substance: ASPIRIN
     Indication: Antiphospholipid syndrome
     Dosage: 25 MILLIGRAM, TID
     Route: 048
  3. HYDROXYCHLOROQUINE [Concomitant]
     Active Substance: HYDROXYCHLOROQUINE
     Indication: Antiphospholipid syndrome
     Dosage: 100 MILLIGRAM, TID
  4. CYCLOSPORINE [Concomitant]
     Active Substance: CYCLOSPORINE
     Indication: Antiphospholipid syndrome
     Dosage: 50 MILLIGRAM, TID
  5. PREDNISONE [Concomitant]
     Active Substance: PREDNISONE
     Indication: Antiphospholipid syndrome
     Dosage: 20 MILLIGRAM, BID
     Route: 048
  6. PREDNISONE [Concomitant]
     Active Substance: PREDNISONE
     Dosage: 20 MILLIGRAM, BID
  7. PREDNISONE [Concomitant]
     Active Substance: PREDNISONE
     Dosage: 10 MILLIGRAM, BID
  8. PREDNISONE [Concomitant]
     Active Substance: PREDNISONE
     Dosage: 7.5 MILLIGRAM, QD
  9. DYDROGESTERONE [Concomitant]
     Active Substance: DYDROGESTERONE
     Indication: Vaginal haemorrhage
     Dosage: 10 MILLIGRAM, TID
  10. CEFOPERAZONE [Concomitant]
     Active Substance: CEFOPERAZONE
     Indication: Evidence based treatment
     Dosage: UNK, 3 ONLY
  11. SULBACTAM SODIUM [Concomitant]
     Active Substance: SULBACTAM SODIUM
     Indication: Evidence based treatment
     Dosage: 2 GRAM, 3 ONLY
  12. IMMUNE GLOBULIN NOS [Concomitant]
     Active Substance: IMMUNE GLOBULIN NOS
     Indication: Acute generalised exanthematous pustulosis
     Dosage: 20 GRAM, QD
  13. IMMUNE GLOBULIN NOS [Concomitant]
     Active Substance: IMMUNE GLOBULIN NOS
     Indication: Impetigo herpetiformis
  14. ENOXAPARIN [Concomitant]
     Active Substance: ENOXAPARIN
     Indication: Coagulopathy
     Dosage: 4000 INTERNATIONAL UNIT
     Route: 058
  15. ACETAMINOPHEN [Concomitant]
     Active Substance: ACETAMINOPHEN
     Indication: Antiinflammatory therapy

REACTIONS (5)
  - Impetigo herpetiformis [Recovered/Resolved]
  - Hypoalbuminaemia [Recovered/Resolved]
  - Stillbirth [Recovered/Resolved]
  - Off label use [Unknown]
  - Maternal exposure during pregnancy [Recovered/Resolved]
